FAERS Safety Report 7349740-5 (Version None)
Quarter: 2011Q1

REPORT INFORMATION
  Report Type: 
  Country: None (occurrence: None)
  Receive Date: 20110314
  Receipt Date: 20110218
  Transmission Date: 20110831
  Serious: Yes (Hospitalization)
  Sender: FDA-Public Use
  Company Number: US-BAYER-201024988NA

PATIENT
  Sex: Female
  Weight: 61.678 kg

DRUGS (7)
  1. ALBUTEROL [Concomitant]
     Route: 055
  2. YASMIN [Suspect]
     Indication: CONTRACEPTION
     Dosage: UNK
     Route: 048
     Dates: start: 20040101, end: 20080101
  3. UNCODEABLE ^UNCLASSIFIABLE^ [Concomitant]
  4. METABOLIFE [Concomitant]
     Dosage: UNK UNK, TID
  5. YAZ [Suspect]
     Indication: CONTRACEPTION
     Dosage: UNK
     Dates: start: 20070101, end: 20080101
  6. VITAMIN E [Concomitant]
  7. UNCODEABLE ^UNCLASSIFIABLE^ [Concomitant]
     Dosage: 0.125 MG, PRN

REACTIONS (2)
  - HAEMOPTYSIS [None]
  - PULMONARY EMBOLISM [None]
